FAERS Safety Report 10561143 (Version 1)
Quarter: 2014Q4

REPORT INFORMATION
  Report Type: Spontaneous
  Country: US (occurrence: US)
  Receive Date: 20141103
  Receipt Date: 20141103
  Transmission Date: 20150529
  Serious: Yes (Other)
  Sender: FDA-Public Use
  Company Number: US-ABBVIE-14P-163-1301322-00

PATIENT
  Age: 62 Year
  Sex: Male

DRUGS (7)
  1. ANDRODERM [Suspect]
     Active Substance: TESTOSTERONE
     Route: 065
     Dates: start: 200405
  2. ANDRODERM [Suspect]
     Active Substance: TESTOSTERONE
     Indication: PRODUCT USED FOR UNKNOWN INDICATION
     Route: 065
     Dates: start: 200404
  3. DEPO-TESTOSTERONE [Suspect]
     Active Substance: TESTOSTERONE CYPIONATE
     Route: 065
     Dates: start: 200410
  4. ANDRODERM [Suspect]
     Active Substance: TESTOSTERONE
     Route: 065
     Dates: start: 200407
  5. DEPO-TESTOSTERONE [Suspect]
     Active Substance: TESTOSTERONE CYPIONATE
     Indication: PRODUCT USED FOR UNKNOWN INDICATION
     Route: 065
     Dates: start: 200407
  6. ANDROGEL [Suspect]
     Active Substance: TESTOSTERONE
     Indication: BLOOD TESTOSTERONE DECREASED
     Route: 062
  7. DEPO-TESTOSTERONE [Suspect]
     Active Substance: TESTOSTERONE CYPIONATE
     Route: 065
     Dates: start: 200412

REACTIONS (10)
  - Anhedonia [Unknown]
  - Economic problem [Unknown]
  - Deep vein thrombosis [Unknown]
  - Pain [Unknown]
  - Fear [Unknown]
  - Deep vein thrombosis [Unknown]
  - Physical disability [Unknown]
  - Anxiety [Unknown]
  - Social problem [Unknown]
  - Injury [Unknown]

NARRATIVE: CASE EVENT DATE: 20030912
